FAERS Safety Report 9710877 (Version 2)
Quarter: 2013Q4

REPORT INFORMATION
  Report Type: Spontaneous
  Country: US (occurrence: US)
  Receive Date: 20131126
  Receipt Date: 20131126
  Transmission Date: 20140711
  Serious: No
  Sender: FDA-Public Use
  Company Number: US201205000318

PATIENT
  Age: 52 Year
  Sex: Female
  Weight: 99.77 kg

DRUGS (2)
  1. BYDUREON [Suspect]
     Indication: TYPE 2 DIABETES MELLITUS
     Dosage: 73177,APR14
     Route: 058
     Dates: start: 20120424
  2. TROSPIUM CHLORIDE [Concomitant]

REACTIONS (3)
  - Nausea [Recovered/Resolved]
  - Weight increased [Unknown]
  - Blood glucose increased [Unknown]
